FAERS Safety Report 20483962 (Version 2)
Quarter: 2022Q1

REPORT INFORMATION
  Report Type: Other
  Country: US (occurrence: US)
  Receive Date: 20220217
  Receipt Date: 20220308
  Transmission Date: 20220423
  Serious: Yes (Hospitalization)
  Sender: FDA-Public Use
  Company Number: US-NEUROCRINE BIOSCIENCES INC.-2022NBI00681

PATIENT

DRUGS (2)
  1. INGREZZA [Suspect]
     Active Substance: VALBENAZINE
     Indication: Tardive dyskinesia
     Dosage: 80 MILLIGRAM, QD
     Route: 048
     Dates: start: 20220216
  2. INGREZZA [Suspect]
     Active Substance: VALBENAZINE
     Dosage: 40 MILLIGRAM, QD
     Route: 048
     Dates: start: 20220208, end: 20220215

REACTIONS (16)
  - Urticaria [Unknown]
  - Diarrhoea [Unknown]
  - Insomnia [Unknown]
  - Dyskinesia [Unknown]
  - Restless legs syndrome [Unknown]
  - Fatigue [Unknown]
  - Urinary tract infection [Unknown]
  - Dizziness postural [Unknown]
  - Rhinorrhoea [Unknown]
  - Sneezing [Unknown]
  - Secretion discharge [Unknown]
  - Arthritis [Unknown]
  - Pain in jaw [Unknown]
  - Stress [Unknown]
  - Hypersensitivity [Unknown]
  - Constipation [Unknown]

NARRATIVE: CASE EVENT DATE: 20220201
